FAERS Safety Report 8306590-0 (Version None)
Quarter: 2012Q2

REPORT INFORMATION
  Report Type: 
  Country: None (occurrence: None)
  Receive Date: 20120424
  Receipt Date: 20120409
  Transmission Date: 20120825
  Serious: Yes (Hospitalization)
  Sender: FDA-Public Use
  Company Number: US-PAR PHARMACEUTICAL, INC-2012SCPR004319

PATIENT

DRUGS (23)
  1. METRONIDAZOLE [Suspect]
     Dosage: UNK, UNKNOWN
     Route: 065
  2. ATENOLOL [Concomitant]
     Indication: PRODUCT USED FOR UNKNOWN INDICATION
     Dosage: UNK, UNKNOWN
     Route: 065
  3. NEUPOGEN [Concomitant]
     Indication: PRODUCT USED FOR UNKNOWN INDICATION
     Dosage: UNK, UNKNOWN
     Route: 065
     Dates: start: 20110531
  4. ZEVALIN [Suspect]
     Dosage: 4.6 MCI, SINGLE
     Route: 042
     Dates: start: 20110503, end: 20110503
  5. FENTANYL [Concomitant]
     Indication: PRODUCT USED FOR UNKNOWN INDICATION
     Dosage: UNK, UNKNOWN
     Route: 065
  6. ALLOPURINOL [Concomitant]
     Indication: PRODUCT USED FOR UNKNOWN INDICATION
     Dosage: UNK, UNKNOWN
     Route: 065
  7. COLCHICINE [Concomitant]
     Indication: PRODUCT USED FOR UNKNOWN INDICATION
     Dosage: UNK, UNKNOWN
     Route: 065
  8. ASPIRIN [Concomitant]
     Indication: PRODUCT USED FOR UNKNOWN INDICATION
     Dosage: UNK, UNKNOWN
     Route: 065
  9. METRONIDAZOLE [Suspect]
     Indication: PYREXIA
     Dosage: 500 MG, TID
     Route: 048
     Dates: start: 20110604, end: 20110605
  10. FAMVIR                             /01226201/ [Concomitant]
     Indication: PRODUCT USED FOR UNKNOWN INDICATION
     Dosage: UNK, UNKNOWN
     Route: 065
  11. ZEVALIN [Suspect]
     Indication: MULTIPLE MYELOMA
     Dosage: 31.6 MCI, SINGLE
     Route: 042
     Dates: start: 20110512, end: 20110512
  12. MEROPENEM [Suspect]
     Indication: PYREXIA
     Dosage: 1 G, QD
     Route: 042
     Dates: start: 20110606, end: 20110618
  13. SEROQUEL [Concomitant]
     Indication: PRODUCT USED FOR UNKNOWN INDICATION
     Dosage: UNK, UNKNOWN
     Route: 065
  14. DILAUDID [Concomitant]
     Indication: PRODUCT USED FOR UNKNOWN INDICATION
     Dosage: UNK, UNKNOWN
     Route: 065
  15. VANCOMYCIN [Concomitant]
     Indication: PRODUCT USED FOR UNKNOWN INDICATION
     Dosage: UNK, UNKNOWN
     Route: 065
     Dates: start: 20110605, end: 20110606
  16. NEURONTIN [Concomitant]
     Indication: HYPOAESTHESIA
     Dosage: UNK, UNKNOWN
     Route: 065
  17. VANCOMYCIN [Concomitant]
     Dosage: UNK, UNKNOWN
     Route: 065
     Dates: start: 20110606, end: 20110627
  18. AZTREONAM [Concomitant]
     Indication: PYREXIA
     Dosage: UNK, UNKNOWN
     Route: 065
     Dates: start: 20110618, end: 20110627
  19. CIPROFLOXACIN [Concomitant]
     Indication: PRODUCT USED FOR UNKNOWN INDICATION
     Dosage: UNK, UNKNOWN
     Route: 065
  20. RITUXAN [Suspect]
     Indication: MULTIPLE MYELOMA
     Dosage: 200 MG, SINGLE
     Route: 065
     Dates: start: 20110503, end: 20110503
  21. RITUXAN [Suspect]
     Dosage: 200 MG, SINGLE
     Route: 065
     Dates: start: 20110512, end: 20110512
  22. CEFEPIME [Suspect]
     Indication: PYREXIA
     Dosage: 2 G, TID
     Route: 042
     Dates: start: 20110603, end: 20110606
  23. ATIVAN [Concomitant]
     Indication: PRODUCT USED FOR UNKNOWN INDICATION
     Dosage: UNK, UNKNOWN
     Route: 065

REACTIONS (6)
  - RASH MACULAR [None]
  - WHITE BLOOD CELL COUNT DECREASED [None]
  - DIARRHOEA [None]
  - PERIRECTAL ABSCESS [None]
  - FEBRILE NEUTROPENIA [None]
  - HYPOPHAGIA [None]
